FAERS Safety Report 22054448 (Version 2)
Quarter: 2023Q1

REPORT INFORMATION
  Report Type: Report from Study
  Country: US (occurrence: US)
  Receive Date: 20230302
  Receipt Date: 20230307
  Transmission Date: 20230418
  Serious: No
  Sender: FDA-Public Use
  Company Number: US-002147023-NVSC2023US046956

PATIENT
  Sex: Female

DRUGS (2)
  1. CLOBETASOL [Suspect]
     Active Substance: CLOBETASOL
     Indication: Psoriasis
     Dosage: 0.05 %
     Route: 061
  2. CLOBETASOL [Suspect]
     Active Substance: CLOBETASOL
     Indication: Hidradenitis

REACTIONS (18)
  - Hidradenitis [Unknown]
  - Fistula [Unknown]
  - Sinus disorder [Unknown]
  - Papule [Unknown]
  - White blood cell count increased [Unknown]
  - Neutrophil count increased [Unknown]
  - Blood creatinine decreased [Unknown]
  - Protein total increased [Unknown]
  - Globulins increased [Unknown]
  - Alanine aminotransferase increased [Unknown]
  - High density lipoprotein decreased [Unknown]
  - Low density lipoprotein increased [Unknown]
  - Glycosylated haemoglobin increased [Unknown]
  - Hepatitis B surface antibody positive [Unknown]
  - Dermatitis [Unknown]
  - Pustule [Unknown]
  - Psoriasis [Unknown]
  - Drug ineffective [Unknown]
